FAERS Safety Report 15486555 (Version 1)
Quarter: 2018Q4

REPORT INFORMATION
  Report Type: Spontaneous
  Country: GB (occurrence: GB)
  Receive Date: 20181011
  Receipt Date: 20181011
  Transmission Date: 20190205
  Serious: Yes (Death, Hospitalization)
  Sender: FDA-Public Use
  Company Number: GB-ROCHE-2197312

PATIENT
  Age: 66 Year
  Sex: Female

DRUGS (1)
  1. CAPECITABINE. [Suspect]
     Active Substance: CAPECITABINE
     Indication: BREAST CANCER METASTATIC
     Route: 065
     Dates: start: 20180129

REACTIONS (3)
  - Pancytopenia [Unknown]
  - Dihydropyrimidine dehydrogenase deficiency [Unknown]
  - Sepsis [Fatal]

NARRATIVE: CASE EVENT DATE: 20180212
